FAERS Safety Report 5275512-1 (Version None)
Quarter: 2007Q1

REPORT INFORMATION
  Report Type: 
  Country: None (occurrence: None)
  Receive Date: 20070326
  Receipt Date: 20070316
  Transmission Date: 20070707
  Serious: Yes (Life-Threatening, Hospitalization)
  Sender: FDA-Public Use
  Company Number: DE-AVENTIS-200710710DE

PATIENT
  Age: 31 Year
  Sex: Male
  Weight: 60 kg

DRUGS (1)
  1. RIFATER [Suspect]
     Indication: PULMONARY TUBERCULOSIS
     Dosage: DOSE: NOT REPORTED
     Route: 048
     Dates: start: 20061201, end: 20070101

REACTIONS (8)
  - ACUTE HEPATIC FAILURE [None]
  - DIALYSIS [None]
  - HEPATIC STEATOSIS [None]
  - HYPONATRAEMIA [None]
  - LIVER TRANSPLANT [None]
  - PLEURAL EFFUSION [None]
  - POST PROCEDURAL HAEMORRHAGE [None]
  - RASH [None]
